FAERS Safety Report 24591128 (Version 2)
Quarter: 2024Q4

REPORT INFORMATION
  Report Type: Report from Study
  Country: KR (occurrence: KR)
  Receive Date: 20241107
  Receipt Date: 20241113
  Transmission Date: 20250115
  Serious: Yes (Hospitalization)
  Sender: ABBVIE
  Company Number: KR-ABBVIE-5991377

PATIENT
  Age: 43 Year
  Sex: Male
  Weight: 76 kg

DRUGS (14)
  1. RINVOQ [Suspect]
     Active Substance: UPADACITINIB
     Indication: Dermatitis atopic
     Route: 048
     Dates: start: 20230706, end: 20240320
  2. RINVOQ [Suspect]
     Active Substance: UPADACITINIB
     Indication: Dermatitis atopic
     Dosage: DRUG START DATE-2024
     Route: 048
  3. XIGDUO XR TAB 10/1000mg [Concomitant]
     Indication: Hyperlipidaemia
     Route: 048
     Dates: start: 20210123
  4. ALPHAGAN P [Concomitant]
     Active Substance: BRIMONIDINE TARTRATE
     Indication: Ocular hypertension
     Dosage: TIME INTERVAL: 0.33333333 DAYS: UNIT DOSE: UNKNOWN DROP?P EYE DROP 0.15% 5ML
     Route: 047
     Dates: start: 20170329
  5. LUMIGAN [Concomitant]
     Active Substance: BIMATOPROST
     Indication: Ocular hypertension
     Dosage: UNIT DOSE: UNKNOWN DROP? 0.01%
     Route: 047
     Dates: start: 20230913
  6. METHYLPREDNISOLONE ACEPONATE [Concomitant]
     Active Substance: METHYLPREDNISOLONE ACEPONATE
     Indication: Dermatitis atopic
     Dosage: UNIT DOSE: UNKNOWN FTU(FINGER TIP UNIT)?FREQUENCY TEXT: PRN?15 MG
     Route: 061
     Dates: start: 20231130, end: 20240124
  7. XIGDUO XR [Concomitant]
     Active Substance: DAPAGLIFLOZIN PROPANEDIOL\METFORMIN HYDROCHLORIDE
     Indication: Hyperlipidaemia
     Route: 048
     Dates: start: 20210123
  8. PRAVASTATIN SODIUM [Concomitant]
     Active Substance: PRAVASTATIN SODIUM
     Indication: Hyperlipidaemia
     Dosage: 40MG
     Route: 048
     Dates: start: 20230130
  9. FENOFIBRATE [Concomitant]
     Active Substance: FENOFIBRATE
     Indication: Hyperlipidaemia
     Dosage: 160MG
     Route: 048
     Dates: start: 20230605
  10. EASYEF [Concomitant]
     Indication: Dermatitis atopic
     Dosage: UNIT DOSE: UNKNOWN FTU(FINGER TIP UNIT)?10G?FREQUENCY TEXT: PRN
     Route: 061
     Dates: start: 20231102, end: 20240319
  11. LAFUTIDINE [Concomitant]
     Active Substance: LAFUTIDINE
     Indication: Gastritis
     Route: 048
     Dates: start: 20190422
  12. DORZOLAMIDE HYDROCHLORIDE\TIMOLOL MALEATE [Concomitant]
     Active Substance: DORZOLAMIDE HYDROCHLORIDE\TIMOLOL MALEATE
     Indication: Ocular hypertension
     Dosage: TIME INTERVAL: 0.33333333 DAYS: UNIT DOSE: UNKNOWN DROP?OPHTHALMIC SOLUTION
     Route: 047
     Dates: start: 20230913
  13. LACTICARE ZEMAGIS [Concomitant]
     Indication: Dermatitis atopic
     Dosage: UNIT DOSE: UNKNOWN FTU(FINGER TIP UNIT)? 0.25% 20G?FREQUENCY TEXT: PRN
     Route: 061
     Dates: start: 20240125, end: 20240319
  14. DIQUAFOSOL TETRASODIUM [Concomitant]
     Active Substance: DIQUAFOSOL TETRASODIUM
     Indication: Dry eye
     Dosage: TIME INTERVAL: 0.16666667 DAYS: UNIT DOSE: UNKNOWN DROP?OPHTHALMIC SOLUTION 3% 0.4ML
     Route: 047
     Dates: start: 20230807, end: 20230912

REACTIONS (1)
  - Road traffic accident [Recovered/Resolved]

NARRATIVE: CASE EVENT DATE: 20231214
